FAERS Safety Report 4697314-7 (Version None)
Quarter: 2005Q2

REPORT INFORMATION
  Report Type: 
  Country: None (occurrence: None)
  Receive Date: 20050622
  Receipt Date: 20050616
  Transmission Date: 20051028
  Serious: Yes (Hospitalization)
  Sender: FDA-Public Use
  Company Number: 200515693GDDC

PATIENT
  Age: 48 Year
  Sex: Male

DRUGS (2)
  1. ALLEGRA [Suspect]
     Indication: SEASONAL ALLERGY
     Dosage: DOSE: 120 MG
     Route: 048
  2. RHINOCORT [Concomitant]
     Dosage: DOSE: UNK
     Route: 045

REACTIONS (3)
  - DYSPEPSIA [None]
  - NAUSEA [None]
  - VENTRICULAR TACHYCARDIA [None]
